FAERS Safety Report 6425344-3 (Version None)
Quarter: 2009Q4

REPORT INFORMATION
  Report Type: 
  Country: None (occurrence: None)
  Receive Date: 20091103
  Receipt Date: 20091027
  Transmission Date: 20100525
  Serious: Yes (Death, Hospitalization)
  Sender: FDA-Public Use
  Company Number: A0812489A

PATIENT
  Age: 64 Year
  Sex: Female
  Weight: 109 kg

DRUGS (1)
  1. AVANDIA [Suspect]
     Route: 048
     Dates: start: 20000101, end: 20010604

REACTIONS (5)
  - ANGINA PECTORIS [None]
  - ATRIAL FIBRILLATION [None]
  - CARDIAC ARREST [None]
  - CARDIAC FAILURE CONGESTIVE [None]
  - CARDIOMYOPATHY [None]
